FAERS Safety Report 4417250-0 (Version None)
Quarter: 2004Q3

REPORT INFORMATION
  Report Type: 
  Country: None (occurrence: None)
  Receive Date: 20040806
  Receipt Date: 20040701
  Transmission Date: 20050211
  Serious: Yes (Death)
  Sender: FDA-Public Use
  Company Number: GBPFL-S-20040016

PATIENT
  Age: 70 Year
  Sex: Male
  Weight: 74 kg

DRUGS (2)
  1. NAVELBINE [Suspect]
     Dosage: 55MG CYCLIC
     Route: 042
     Dates: start: 20040609, end: 20040609
  2. ALLOPURINOL [Concomitant]

REACTIONS (2)
  - DYSPNOEA [None]
  - RESPIRATORY FAILURE [None]
